FAERS Safety Report 4323318-X (Version None)
Quarter: 2004Q1

REPORT INFORMATION
  Report Type: 
  Country: None (occurrence: None)
  Receive Date: 20040323
  Receipt Date: 20031117
  Transmission Date: 20041129
  Serious: No
  Sender: FDA-Public Use
  Company Number: M03-341-158

PATIENT
  Age: 80 Year
  Sex: Female
  Weight: 53 kg

DRUGS (7)
  1. VELCADE [Suspect]
     Indication: MULTIPLE MYELOMA
     Dosage: COMPLETED 3 CYCLES:  INTRAVENOUS (NOT OTHERWISE SPECIFIED)
     Route: 042
  2. DECADRON [Concomitant]
  3. LOSARTAN [Concomitant]
  4. PRILOSEC [Concomitant]
  5. TOPROL-XL [Concomitant]
  6. VIOXX [Concomitant]
  7. WARFARIN SODIUM [Concomitant]

REACTIONS (5)
  - ASTHENOPIA [None]
  - EYE IRRITATION [None]
  - HOT FLUSH [None]
  - NIGHT SWEATS [None]
  - VISION BLURRED [None]
